FAERS Safety Report 12612556 (Version 1)
Quarter: 2016Q3

REPORT INFORMATION
  Report Type: Spontaneous
  Country: US (occurrence: US)
  Receive Date: 20160801
  Receipt Date: 20160801
  Transmission Date: 20161109
  Serious: No
  Sender: FDA-Public Use
  Company Number: US-TEIKOKU PHARMA USA-TPU2016-00496

PATIENT
  Age: 70 Year
  Sex: Female
  Weight: 79.45 kg

DRUGS (2)
  1. LIDODERM [Suspect]
     Active Substance: LIDOCAINE
     Indication: BACK PAIN
     Route: 061
     Dates: start: 2014, end: 201606
  2. LIDODERM [Suspect]
     Active Substance: LIDOCAINE
     Indication: HYPOAESTHESIA
     Route: 061
     Dates: start: 201606

REACTIONS (2)
  - Expired product administered [Not Recovered/Not Resolved]
  - Underdose [Not Recovered/Not Resolved]

NARRATIVE: CASE EVENT DATE: 201606
